FAERS Safety Report 14648716 (Version 6)
Quarter: 2018Q3

REPORT INFORMATION
  Report Type: Report from Study
  Country: None (occurrence: US)
  Receive Date: 20180316
  Receipt Date: 20180926
  Transmission Date: 20181010
  Serious: Yes (Other)
  Sender: FDA-Public Use
  Company Number: US-ABBVIE-17K-163-1892299-00

PATIENT
  Age: 61 Year
  Sex: Female

DRUGS (3)
  1. HUMIRA [Suspect]
     Active Substance: ADALIMUMAB
     Indication: RHEUMATOID ARTHRITIS
     Route: 058
  2. HUMIRA [Suspect]
     Active Substance: ADALIMUMAB
     Route: 058
  3. HUMIRA [Suspect]
     Active Substance: ADALIMUMAB
     Route: 058
     Dates: end: 201801

REACTIONS (51)
  - Foot operation [Unknown]
  - Decreased appetite [Not Recovered/Not Resolved]
  - Weight decreased [Unknown]
  - Fatigue [Unknown]
  - Pain in extremity [Not Recovered/Not Resolved]
  - Dizziness [Unknown]
  - Intervertebral disc degeneration [Unknown]
  - Insomnia [Not Recovered/Not Resolved]
  - Peripheral pulse decreased [Unknown]
  - Abdominal pain upper [Not Recovered/Not Resolved]
  - Rheumatoid arthritis [Recovering/Resolving]
  - Pain in extremity [Not Recovered/Not Resolved]
  - Dyspnoea [Unknown]
  - Contusion [Not Recovered/Not Resolved]
  - Vein rupture [Unknown]
  - Rheumatoid arthritis [Recovered/Resolved]
  - Hordeolum [Not Recovered/Not Resolved]
  - Oropharyngeal pain [Unknown]
  - Pain [Not Recovered/Not Resolved]
  - Restless legs syndrome [Not Recovered/Not Resolved]
  - Vitamin D decreased [Unknown]
  - Blood magnesium decreased [Unknown]
  - Skin indentation [Unknown]
  - Contusion [Unknown]
  - Joint swelling [Not Recovered/Not Resolved]
  - Spinal column stenosis [Unknown]
  - Peripheral swelling [Not Recovered/Not Resolved]
  - Monoplegia [Not Recovered/Not Resolved]
  - Intervertebral disc disorder [Unknown]
  - Intervertebral disc protrusion [Unknown]
  - Peripheral coldness [Unknown]
  - Hyperhidrosis [Not Recovered/Not Resolved]
  - Cholelithiasis [Unknown]
  - Muscle spasms [Not Recovered/Not Resolved]
  - Nausea [Not Recovered/Not Resolved]
  - Peripheral coldness [Not Recovered/Not Resolved]
  - Hypotension [Not Recovered/Not Resolved]
  - Hyperaesthesia [Unknown]
  - Increased tendency to bruise [Unknown]
  - Sensitivity to weather change [Not Recovered/Not Resolved]
  - Blood calcium decreased [Unknown]
  - Diarrhoea [Not Recovered/Not Resolved]
  - Pain [Not Recovered/Not Resolved]
  - Poor peripheral circulation [Not Recovered/Not Resolved]
  - Arthropathy [Unknown]
  - Haemoptysis [Not Recovered/Not Resolved]
  - Synovial cyst [Unknown]
  - Insomnia [Unknown]
  - Blood sodium decreased [Unknown]
  - Nodule [Not Recovered/Not Resolved]
  - Middle ear effusion [Unknown]

NARRATIVE: CASE EVENT DATE: 2017
